FAERS Safety Report 18707585 (Version 1)
Quarter: 2021Q1

REPORT INFORMATION
  Report Type: Spontaneous
  Country: CA (occurrence: CA)
  Receive Date: 20210106
  Receipt Date: 20210106
  Transmission Date: 20210419
  Serious: Yes (Other)
  Sender: FDA-Public Use
  Company Number: None

PATIENT
  Age: 57 Year
  Sex: Female

DRUGS (2)
  1. ALTACE [Suspect]
     Active Substance: RAMIPRIL
     Indication: HYPERTENSION
     Dosage: ?          QUANTITY:1 CAPSULE(S);?
     Route: 048
  2. JAMEISON VITAMIN D [Concomitant]

REACTIONS (2)
  - Gluten sensitivity [None]
  - Anti-transglutaminase antibody increased [None]

NARRATIVE: CASE EVENT DATE: 20190625
